FAERS Safety Report 25098894 (Version 1)
Quarter: 2025Q1

REPORT INFORMATION
  Report Type: Spontaneous
  Country: US (occurrence: US)
  Receive Date: 20250320
  Receipt Date: 20250320
  Transmission Date: 20250409
  Serious: Yes (Other)
  Sender: ABBVIE
  Company Number: US-ABBVIE-6182093

PATIENT
  Sex: Male

DRUGS (2)
  1. CREON [Suspect]
     Active Substance: PANCRELIPASE AMYLASE\PANCRELIPASE LIPASE\PANCRELIPASE PROTEASE
     Indication: Pancreatitis chronic
     Route: 048
     Dates: start: 2015
  2. OMEPRAZOLE [Concomitant]
     Active Substance: OMEPRAZOLE
     Indication: Product used for unknown indication

REACTIONS (6)
  - Pancreatic stent placement [Unknown]
  - Abdominal pain [Not Recovered/Not Resolved]
  - Pancreatic disorder [Unknown]
  - Faecaloma [Unknown]
  - Cholecystectomy [Unknown]
  - Product administration error [Unknown]

NARRATIVE: CASE EVENT DATE: 20140101
